FAERS Safety Report 13358631 (Version 2)
Quarter: 2017Q2

REPORT INFORMATION
  Report Type: Spontaneous
  Country: US (occurrence: US)
  Receive Date: 20170322
  Receipt Date: 20170425
  Transmission Date: 20170830
  Serious: Yes (Other)
  Sender: FDA-Public Use
  Company Number: US-009507513-1703USA007686

PATIENT
  Sex: Female

DRUGS (1)
  1. KEYTRUDA [Suspect]
     Active Substance: PEMBROLIZUMAB
     Indication: SKIN SQUAMOUS CELL CARCINOMA METASTATIC
     Dosage: 2 MG/KG, EVERY 3 WEEKS

REACTIONS (6)
  - Salivary hypersecretion [Unknown]
  - Headache [Unknown]
  - Amnesia [Unknown]
  - Malignant neoplasm progression [Unknown]
  - Fatigue [Unknown]
  - Gait disturbance [Unknown]
